FAERS Safety Report 10806932 (Version 1)
Quarter: 2015Q1

REPORT INFORMATION
  Report Type: Report from Study
  Country: US (occurrence: US)
  Receive Date: 20150217
  Receipt Date: 20150217
  Transmission Date: 20150721
  Serious: No
  Sender: FDA-Public Use
  Company Number: US-ABBVIE-14K-163-1258541-00

PATIENT
  Age: 57 Year
  Sex: Male

DRUGS (4)
  1. FISH OIL [Concomitant]
     Active Substance: FISH OIL
     Indication: PRODUCT USED FOR UNKNOWN INDICATION
  2. HUMIRA [Suspect]
     Active Substance: ADALIMUMAB
     Indication: CROHN^S DISEASE
     Dates: start: 20140318
  3. VITAMIN B12 [Concomitant]
     Active Substance: CYANOCOBALAMIN
     Indication: MALABSORPTION
     Dosage: SHOTS
  4. MULTIVITAMINUM [Concomitant]
     Indication: VITAMIN SUPPLEMENTATION

REACTIONS (11)
  - Drug ineffective [Not Recovered/Not Resolved]
  - Rash pruritic [Unknown]
  - Wrong technique in drug usage process [Unknown]
  - Incorrect dose administered [Unknown]
  - Transient acantholytic dermatosis [Unknown]
  - Rash [Unknown]
  - Skin burning sensation [Unknown]
  - Scab [Recovered/Resolved]
  - Purpura [Unknown]
  - Gastric hypermotility [Not Recovered/Not Resolved]
  - Weight decreased [Not Recovered/Not Resolved]

NARRATIVE: CASE EVENT DATE: 2014
